FAERS Safety Report 8791307 (Version 2)
Quarter: 2012Q4

REPORT INFORMATION
  Report Type: Spontaneous
  Country: US (occurrence: None)
  Receive Date: 20120911
  Receipt Date: 20121001
  Transmission Date: 20130627
  Serious: Yes (Other)
  Sender: FDA-Public Use
  Company Number: AMAG201203093

PATIENT
  Age: 37 Year
  Sex: Female
  Weight: 60 kg

DRUGS (4)
  1. FERAHEME [Suspect]
     Indication: IRON DEFICIENCY ANEMIA
     Dosage: 7 ml, (210mg) single, IV push
     Route: 042
     Dates: start: 20120810, end: 20120810
  2. VENTOLIN (SALBUTAMOL SULFATE) [Concomitant]
  3. ZANTAC (RANITIDINE HYDROCHLORIDE) [Concomitant]
  4. MOTRIN (IBUPROFEN) [Concomitant]

REACTIONS (8)
  - Dyspnoea [None]
  - Throat tightness [None]
  - Chills [None]
  - Dysstasia [None]
  - Pallor [None]
  - Blood pressure decreased [None]
  - Pruritus [None]
  - Hypersensitivity [None]
